FAERS Safety Report 5341722-8 (Version None)
Quarter: 2007Q2

REPORT INFORMATION
  Report Type: 
  Country: None (occurrence: None)
  Receive Date: 20070530
  Receipt Date: 20070516
  Transmission Date: 20071010
  Serious: Yes (Hospitalization)
  Sender: FDA-Public Use
  Company Number: 8024088

PATIENT
  Age: 7 Year
  Sex: Female
  Weight: 24.9 kg

DRUGS (1)
  1. KEPPRA [Suspect]
     Indication: EPILEPSY
     Dosage: 7 ML

REACTIONS (15)
  - ABDOMINAL PAIN UPPER [None]
  - BODY TEMPERATURE [None]
  - CONCUSSION [None]
  - CRYING [None]
  - FALL [None]
  - HAEMATOMA [None]
  - HEAD INJURY [None]
  - HEADACHE [None]
  - HEART RATE INCREASED [None]
  - LEUKOPENIA [None]
  - PALLOR [None]
  - RHINITIS [None]
  - THROMBOCYTOPENIA [None]
  - VIRAL INFECTION [None]
  - VOMITING [None]
